FAERS Safety Report 17516986 (Version 1)
Quarter: 2020Q1

REPORT INFORMATION
  Report Type: Spontaneous
  Country: US (occurrence: US)
  Receive Date: 20200227
  Receipt Date: 20200227
  Transmission Date: 20200409
  Serious: Yes (Hospitalization)
  Sender: FDA-Public Use
  Company Number: None

PATIENT
  Age: 54 Year
  Sex: Female
  Weight: 79.5 kg

DRUGS (2)
  1. ERDAFITINIB 5 MG [Suspect]
     Active Substance: ERDAFITINIB
     Indication: BREAST CANCER METASTATIC
     Route: 048
     Dates: start: 20190926, end: 20200204
  2. PALBOCICLIB [Suspect]
     Active Substance: PALBOCICLIB
     Indication: BREAST CANCER METASTATIC
     Route: 048
     Dates: start: 20190926, end: 20200204

REACTIONS (6)
  - Rectal haemorrhage [None]
  - Dehydration [None]
  - Hypotension [None]
  - Electrolyte imbalance [None]
  - Colitis [None]
  - Anaemia [None]

NARRATIVE: CASE EVENT DATE: 20200207
